FAERS Safety Report 20133967 (Version 1)
Quarter: 2021Q4

REPORT INFORMATION
  Report Type: Report from Study
  Country: BE (occurrence: BE)
  Receive Date: 20211201
  Receipt Date: 20211201
  Transmission Date: 20220303
  Serious: Yes (Other)
  Sender: FDA-Public Use
  Company Number: BE-BRISTOL-MYERS SQUIBB COMPANY-BMS-2021-126936

PATIENT
  Age: 58 Year
  Sex: Female

DRUGS (2)
  1. NIVOLUMAB [Suspect]
     Active Substance: NIVOLUMAB
     Indication: Renal cell carcinoma
     Dosage: UNK, EVERY 3 WEEKS
     Route: 065
     Dates: start: 20210922
  2. IPILIMUMAB [Suspect]
     Active Substance: IPILIMUMAB
     Indication: Renal cell carcinoma
     Dosage: UNK, EVERY 3 WEEKS
     Route: 065
     Dates: start: 20210922

REACTIONS (4)
  - Hyperthyroidism [Unknown]
  - Hypercalcaemia [Unknown]
  - Vitamin D deficiency [Unknown]
  - Autoimmune hepatitis [Unknown]
